FAERS Safety Report 6714638-X (Version None)
Quarter: 2010Q2

REPORT INFORMATION
  Report Type: 
  Country: None (occurrence: None)
  Receive Date: 20100507
  Receipt Date: 20100428
  Transmission Date: 20101027
  Serious: No
  Sender: FDA-Public Use
  Company Number: 2009BI023615

PATIENT
  Age: 57 Year
  Sex: Male

DRUGS (2)
  1. TYSABRI [Suspect]
     Indication: MULTIPLE SCLEROSIS
     Route: 042
     Dates: start: 20061012, end: 20100317
  2. AVONEX [Concomitant]
     Indication: MULTIPLE SCLEROSIS
     Route: 030
     Dates: start: 20000301

REACTIONS (4)
  - BACK INJURY [None]
  - DRUG HYPERSENSITIVITY [None]
  - FALL [None]
  - SOFT TISSUE INJURY [None]
